FAERS Safety Report 5163500-5 (Version None)
Quarter: 2006Q4

REPORT INFORMATION
  Report Type: 
  Country: None (occurrence: None)
  Receive Date: 20061204
  Receipt Date: 20061121
  Transmission Date: 20070319
  Serious: Yes (Other)
  Sender: FDA-Public Use
  Company Number: FR-JNJFOC-20060100450

PATIENT
  Age: 23 Year
  Sex: Male

DRUGS (2)
  1. INFLIXIMAB [Suspect]
     Dosage: TOTAL SIX INFUSIONS
     Route: 042
  2. INFLIXIMAB [Suspect]
     Indication: CROHN'S DISEASE
     Dosage: TOTAL OF SIX INFLIXIMAB INFUSIONS (WEEKS 0,2,6, AND THEN EVERY EIGHT WEEKS)
     Route: 042

REACTIONS (3)
  - COLON CANCER [None]
  - COLONIC STENOSIS [None]
  - SMALL INTESTINAL OBSTRUCTION [None]
